FAERS Safety Report 9563652 (Version 1)
Quarter: 2013Q1

REPORT INFORMATION
  Report Type: Spontaneous
  Country: US (occurrence: None)
  Receive Date: 20121227
  Receipt Date: 20121227
  Transmission Date: 20140127
  Serious: Yes (Other)
  Sender: FDA-Public Use
  Company Number: PHEH2012US002043

PATIENT
  Age: 79 Year
  Sex: Female
  Weight: 70 kg

DRUGS (4)
  1. EXJADE (^CGP 72670^) [Suspect]
     Indication: MYELODYSPLASTIC SYNDROME
     Route: 048
     Dates: start: 20111123
  2. PYRIDOXINE ( PYRIDOXINE) [Concomitant]
  3. DANAZOL ( DANAZOL) [Concomitant]
  4. PROCRIT/00909301/ (ERYTHROPOIETIN) [Concomitant]

REACTIONS (2)
  - Deafness [None]
  - Ear pain [None]
